FAERS Safety Report 7191470-7 (Version None)
Quarter: 2010Q4

REPORT INFORMATION
  Report Type: 
  Country: None (occurrence: None)
  Receive Date: 20101223
  Receipt Date: 20101217
  Transmission Date: 20110411
  Serious: Yes (Hospitalization, Other)
  Sender: FDA-Public Use
  Company Number: AU-BAYER-2010-002469

PATIENT
  Age: 77 Year
  Sex: Female

DRUGS (8)
  1. ULTRAVIST 150 [Suspect]
     Indication: COMPUTERISED TOMOGRAM
     Dosage: 100 ML, ONCE
     Route: 040
     Dates: start: 20101123, end: 20101123
  2. AVAPRO [Concomitant]
     Dosage: UNK
     Route: 048
  3. DIAMICRON MR [Concomitant]
     Dosage: DAILY DOSE 15 MG
     Route: 048
  4. SERTRALINE [Concomitant]
     Dosage: DAILY DOSE 50 MG
  5. LASIX [Concomitant]
     Dosage: DAILY DOSE 40 MG
     Route: 048
  6. SOMAC [Concomitant]
     Dosage: DAILY DOSE 40 MG
     Route: 048
  7. QUINAPRIL [Concomitant]
     Dosage: DAILY DOSE 30 MG
     Route: 048
  8. ANTIBIOTICS [Concomitant]
     Route: 042

REACTIONS (3)
  - DYSKINESIA [None]
  - INCISIONAL HERNIA [None]
  - SPLENOMEGALY [None]
